FAERS Safety Report 5797352-7 (Version None)
Quarter: 2008Q2

REPORT INFORMATION
  Report Type: 
  Country: None (occurrence: None)
  Receive Date: 20080630
  Receipt Date: 20080616
  Transmission Date: 20081010
  Serious: Yes (Hospitalization, Other)
  Sender: FDA-Public Use
  Company Number: 2007318597

PATIENT
  Age: 4 Year
  Sex: Male
  Weight: 15.8759 kg

DRUGS (1)
  1. LISTERINE AGENT COOL BLUE GLACIER MINT (NO ACTIVE INGREDIENT) [Suspect]
     Indication: DENTAL PLAQUE
     Dosage: REGULAR DOSAGE 2 TIMES A DAY, ORAL
     Route: 048
     Dates: start: 20070101, end: 20070423

REACTIONS (18)
  - ACUTE TONSILLITIS [None]
  - COUGH [None]
  - DIARRHOEA [None]
  - EAR PAIN [None]
  - FATIGUE [None]
  - HAEMATOCRIT DECREASED [None]
  - HAEMOGLOBIN DECREASED [None]
  - IRRITABILITY [None]
  - LISTLESS [None]
  - LYMPHADENITIS [None]
  - LYMPHADENOPATHY [None]
  - MUSCULOSKELETAL STIFFNESS [None]
  - NASAL CONGESTION [None]
  - PHARYNGEAL ABSCESS [None]
  - PHARYNGITIS [None]
  - PHARYNGOLARYNGEAL PAIN [None]
  - PYREXIA [None]
  - RHINORRHOEA [None]
